FAERS Safety Report 25033873 (Version 2)
Quarter: 2025Q1

REPORT INFORMATION
  Report Type: Spontaneous
  Country: DE (occurrence: DE)
  Receive Date: 20250303
  Receipt Date: 20250312
  Transmission Date: 20250408
  Serious: Yes (Other)
  Sender: NOVARTIS
  Company Number: DE-002147023-NVSC2025DE034700

PATIENT
  Sex: Female

DRUGS (2)
  1. KESIMPTA [Suspect]
     Active Substance: OFATUMUMAB
     Indication: Multiple sclerosis
     Route: 065
     Dates: start: 20250221
  2. KESIMPTA [Suspect]
     Active Substance: OFATUMUMAB
     Route: 065
     Dates: start: 20250301

REACTIONS (17)
  - Loss of consciousness [Unknown]
  - Multiple sclerosis pseudo relapse [Unknown]
  - Nasopharyngitis [Recovered/Resolved]
  - Oropharyngeal pain [Recovered/Resolved]
  - Headache [Unknown]
  - Piloerection [Unknown]
  - Aphasia [Recovering/Resolving]
  - Head discomfort [Unknown]
  - Oropharyngeal pain [Unknown]
  - Dyspnoea [Unknown]
  - Anxiety [Unknown]
  - Asthenia [Recovered/Resolved]
  - Uhthoff^s phenomenon [Unknown]
  - Gait disturbance [Recovering/Resolving]
  - Feeling abnormal [Unknown]
  - Muscle spasms [Unknown]
  - Chills [Unknown]

NARRATIVE: CASE EVENT DATE: 20250201
